FAERS Safety Report 10220952 (Version 2)
Quarter: 2014Q2

REPORT INFORMATION
  Report Type: Spontaneous
  Country: JP (occurrence: JP)
  Receive Date: 20140606
  Receipt Date: 20140617
  Transmission Date: 20141212
  Serious: Yes (Other)
  Sender: FDA-Public Use
  Company Number: JP-JNJFOC-20140520241

PATIENT
  Age: 78 Year
  Sex: Male

DRUGS (12)
  1. REMINYL [Suspect]
     Indication: DEMENTIA ALZHEIMER^S TYPE
     Dosage: 4 MG AND 8 MG
     Route: 048
     Dates: start: 201201
  2. REQUIP [Suspect]
     Indication: PRODUCT USED FOR UNKNOWN INDICATION
     Route: 048
  3. FP [Concomitant]
     Route: 048
  4. MENESIT [Concomitant]
     Route: 048
  5. SELBEX [Concomitant]
     Route: 048
  6. SODIUM RABEPRAZOLE [Concomitant]
     Route: 048
  7. LAC-B [Concomitant]
     Route: 048
  8. REBAMIPIDE [Concomitant]
     Route: 065
  9. SODIUM GUALENATE [Concomitant]
     Route: 047
  10. MAGNESIUM OXIDE [Concomitant]
     Route: 065
  11. MEQUITAZINE [Concomitant]
     Route: 048
  12. SYMMETREL [Concomitant]
     Route: 048

REACTIONS (2)
  - Blood creatine phosphokinase increased [Unknown]
  - Incorrect dose administered [Unknown]
